FAERS Safety Report 5330632-8 (Version None)
Quarter: 2007Q2

REPORT INFORMATION
  Report Type: 
  Country: None (occurrence: None)
  Receive Date: 20070516
  Receipt Date: 20070430
  Transmission Date: 20071010
  Serious: Yes (Hospitalization)
  Sender: FDA-Public Use
  Company Number: DSM-2007-00141

PATIENT
  Age: 48 Year
  Sex: Male

DRUGS (1)
  1. OLMESAR PLUS (TABLET) [Suspect]
     Indication: HYPERTENSION
     Dosage: 20/12.5 MG (1 IN 1 D), ORAL
     Route: 048
     Dates: start: 20070130, end: 20070307

REACTIONS (4)
  - DEHYDRATION [None]
  - GASTRITIS [None]
  - OESOPHAGITIS [None]
  - RENAL FAILURE ACUTE [None]
